FAERS Safety Report 17617760 (Version 1)
Quarter: 2020Q2

REPORT INFORMATION
  Report Type: Spontaneous
  Country: US (occurrence: US)
  Receive Date: 20200402
  Receipt Date: 20200402
  Transmission Date: 20200713
  Serious: Yes (Other)
  Sender: FDA-Public Use
  Company Number: US-PFIZER INC-2020136015

PATIENT
  Age: 69 Year
  Sex: Male
  Weight: 87.54 kg

DRUGS (1)
  1. GENOTROPIN MQ [Suspect]
     Active Substance: SOMATROPIN
     Indication: CRANIOCEREBRAL INJURY
     Dosage: 0.4 MG, 1X/DAY

REACTIONS (3)
  - Respiratory tract infection [Recovered/Resolved]
  - Off label use [Unknown]
  - Product use in unapproved indication [Unknown]

NARRATIVE: CASE EVENT DATE: 202003
